FAERS Safety Report 9730256 (Version 1)
Quarter: 2013Q4

REPORT INFORMATION
  Report Type: Spontaneous
  Country: US (occurrence: US)
  Receive Date: 20131202
  Receipt Date: 20131202
  Transmission Date: 20140711
  Serious: Yes (Other)
  Sender: FDA-Public Use
  Company Number: US-ENDO PHARMACEUTICALS INC.-OXYC20120008

PATIENT
  Sex: Female

DRUGS (2)
  1. OXYCODONE HCL 5MG [Suspect]
     Indication: NEOPLASM MALIGNANT
     Route: 048
  2. OXYCODONE HCL 5MG [Suspect]
     Indication: PROCEDURAL PAIN

REACTIONS (2)
  - Intentional drug misuse [Unknown]
  - Drug ineffective [Recovered/Resolved]
